FAERS Safety Report 10264732 (Version 1)
Quarter: 2014Q2

REPORT INFORMATION
  Report Type: Spontaneous
  Country: US (occurrence: None)
  Receive Date: 20140625
  Receipt Date: 20140625
  Transmission Date: 20141212
  Serious: Yes (Other)
  Sender: FDA-Public Use
  Company Number: None

PATIENT
  Age: 30 Year
  Sex: Female

DRUGS (3)
  1. GLUCOCRUSH [Suspect]
     Indication: GESTATIONAL DIABETES
     Dosage: 1 BOTTLE  X ONE DOSE  ORAL
     Route: 048
     Dates: start: 20140501, end: 20140510
  2. GLUCOCRUSH [Suspect]
     Indication: LABORATORY TEST
     Dosage: 1 BOTTLE  X ONE DOSE  ORAL
     Route: 048
     Dates: start: 20140501, end: 20140510
  3. UNKNOWN (PRENATAL VITAMINS?) [Concomitant]

REACTIONS (5)
  - Drug dispensing error [None]
  - Accidental overdose [None]
  - Circumstance or information capable of leading to medication error [None]
  - Laboratory test interference [None]
  - Intercepted drug administration error [None]
